FAERS Safety Report 16893109 (Version 3)
Quarter: 2019Q4

REPORT INFORMATION
  Report Type: Report from Study
  Country: US (occurrence: US)
  Receive Date: 20191008
  Receipt Date: 20191210
  Transmission Date: 20200122
  Serious: Yes (Hospitalization)
  Sender: FDA-Public Use
  Company Number: US-BIOGEN-2019BI00788027

PATIENT
  Sex: Female
  Weight: 158.9 kg

DRUGS (1)
  1. TYSABRI [Suspect]
     Active Substance: NATALIZUMAB
     Indication: SECONDARY PROGRESSIVE MULTIPLE SCLEROSIS
     Route: 065

REACTIONS (6)
  - Urinary tract infection [Unknown]
  - Motor dysfunction [Unknown]
  - Off label use [Not Recovered/Not Resolved]
  - Multiple sclerosis [Unknown]
  - Overweight [Unknown]
  - Paresis [Unknown]
